FAERS Safety Report 7741395-0 (Version None)
Quarter: 2011Q3

REPORT INFORMATION
  Report Type: 
  Country: None (occurrence: None)
  Receive Date: 20110909
  Receipt Date: 20110905
  Transmission Date: 20111222
  Serious: Yes (Death)
  Sender: FDA-Public Use
  Company Number: TN-SANOFI-AVENTIS-2011SA057610

PATIENT
  Age: 61 Year
  Sex: Male

DRUGS (8)
  1. PLAVIX [Suspect]
     Indication: STENT PLACEMENT
     Route: 048
     Dates: start: 20101211, end: 20110416
  2. CAPTOPRIL [Concomitant]
     Route: 048
     Dates: end: 20110416
  3. FAMOTIDINE [Concomitant]
     Route: 048
     Dates: end: 20110416
  4. PREDNISOLONE [Concomitant]
     Route: 048
     Dates: end: 20110416
  5. PLAVIX [Suspect]
     Indication: ACUTE CORONARY SYNDROME
     Route: 048
     Dates: start: 20101211, end: 20110416
  6. KERLONE [Concomitant]
     Route: 048
     Dates: end: 20110416
  7. ASPIRIN [Concomitant]
     Route: 048
     Dates: end: 20110416
  8. DEPAKENE [Concomitant]
     Route: 048
     Dates: end: 20110416

REACTIONS (1)
  - SUDDEN DEATH [None]
